FAERS Safety Report 10907090 (Version 1)
Quarter: 2015Q1

REPORT INFORMATION
  Report Type: Spontaneous
  Country: US (occurrence: None)
  Receive Date: 20150309
  Receipt Date: 20150309
  Transmission Date: 20150721
  Serious: No
  Sender: FDA-Public Use
  Company Number: None

PATIENT
  Age: 73 Year
  Sex: Female

DRUGS (28)
  1. VIEKIRA PAK [Suspect]
     Active Substance: DASABUVIR\OMBITASVIR\PARITAPREVIR\RITONAVIR
     Indication: HEPATITIS C
     Dosage: 2 OMBIASVIR, 1 DASABUVIR, PER PAK DIRECTION
     Route: 048
     Dates: start: 20150205, end: 20150304
  2. BUDESONIDE. [Concomitant]
     Active Substance: BUDESONIDE
  3. HYDROCODONE [Concomitant]
     Active Substance: HYDROCODONE
  4. SYMBICORT [Concomitant]
     Active Substance: BUDESONIDE\FORMOTEROL FUMARATE DIHYDRATE
  5. ACYCLOVIR. [Concomitant]
     Active Substance: ACYCLOVIR
  6. FUROSEMIDE. [Concomitant]
     Active Substance: FUROSEMIDE
  7. ALPRAZOLAM. [Concomitant]
     Active Substance: ALPRAZOLAM
  8. AMLODIPINE [Concomitant]
     Active Substance: AMLODIPINE BESYLATE
  9. LOPERAMIDE [Concomitant]
     Active Substance: LOPERAMIDE
  10. METOPROLOL [Concomitant]
     Active Substance: METOPROLOL
  11. MUCINEX [Concomitant]
     Active Substance: GUAIFENESIN
  12. ASA [Concomitant]
     Active Substance: ASPIRIN
  13. CLONIDINE. [Concomitant]
     Active Substance: CLONIDINE
  14. OMEPRAZOLE. [Concomitant]
     Active Substance: OMEPRAZOLE
  15. WARFARIN SODIUM. [Concomitant]
     Active Substance: WARFARIN SODIUM
  16. KLOR-CON [Concomitant]
     Active Substance: POTASSIUM CHLORIDE
  17. FERROUS SULFATE [Concomitant]
     Active Substance: FERROUS SULFATE\FERROUS SULFATE, DRIED
  18. FLORA-Q [Concomitant]
  19. TESSALON [Concomitant]
     Active Substance: BENZONATATE
  20. VITAMIN B12 [Concomitant]
     Active Substance: CYANOCOBALAMIN
  21. IPRATROPIUM BROMIDE. [Concomitant]
     Active Substance: IPRATROPIUM BROMIDE
  22. LOSARTAN [Concomitant]
     Active Substance: LOSARTAN
  23. MONTELUKAST SODIUM. [Concomitant]
     Active Substance: MONTELUKAST SODIUM
  24. CA [Concomitant]
  25. DEXAMETHASONE. [Concomitant]
     Active Substance: DEXAMETHASONE
  26. SPIRONOLACTONE. [Concomitant]
     Active Substance: SPIRONOLACTONE
  27. VENTOLIN [Concomitant]
     Active Substance: ALBUTEROL SULFATE
  28. VOLTAREN [Concomitant]
     Active Substance: DICLOFENAC SODIUM

REACTIONS (3)
  - Rash [None]
  - Oedema peripheral [None]
  - Anxiety [None]

NARRATIVE: CASE EVENT DATE: 20150304
